FAERS Safety Report 11249952 (Version 1)
Quarter: 2015Q3

REPORT INFORMATION
  Report Type: Spontaneous
  Country: US (occurrence: US)
  Receive Date: 20150708
  Receipt Date: 20150708
  Transmission Date: 20151125
  Serious: Yes (Other)
  Sender: FDA-Public Use
  Company Number: US-ELI_LILLY_AND_COMPANY-US201002001401

PATIENT
  Age: 28 Year
  Sex: Male

DRUGS (2)
  1. SYMBYAX [Suspect]
     Active Substance: FLUOXETINE HYDROCHLORIDE\OLANZAPINE
     Indication: BIPOLAR DISORDER
     Dosage: 1 D/F, DAILY (1/D)
     Route: 065
     Dates: start: 20100106, end: 20100114
  2. CAFFEINE. [Concomitant]
     Active Substance: CAFFEINE

REACTIONS (2)
  - Fatigue [Unknown]
  - Generalised tonic-clonic seizure [Recovered/Resolved]

NARRATIVE: CASE EVENT DATE: 201001
